FAERS Safety Report 19280770 (Version 1)
Quarter: 2021Q2

REPORT INFORMATION
  Report Type: Spontaneous
  Country: CN (occurrence: CN)
  Receive Date: 20210520
  Receipt Date: 20210520
  Transmission Date: 20210717
  Serious: Yes (Other)
  Sender: FDA-Public Use
  Company Number: CN-PFIZER INC-2021550015

PATIENT
  Age: 33 Year
  Sex: Female
  Weight: 85 kg

DRUGS (1)
  1. HEMABATE [Suspect]
     Active Substance: CARBOPROST TROMETHAMINE
     Indication: THREATENED LABOUR
     Dosage: 0.250 MG, 1X/DAY
     Route: 030
     Dates: start: 20210323, end: 20210323

REACTIONS (5)
  - Nausea [Recovering/Resolving]
  - Off label use [Recovered/Resolved]
  - Dyspepsia [Unknown]
  - Vomiting [Recovering/Resolving]
  - Abdominal pain [Recovering/Resolving]

NARRATIVE: CASE EVENT DATE: 20210323
